FAERS Safety Report 9249059 (Version 1)
Quarter: 2013Q2

REPORT INFORMATION
  Report Type: Report from Study
  Country: US (occurrence: US)
  Receive Date: 20130423
  Receipt Date: 20130423
  Transmission Date: 20140414
  Serious: Yes (Hospitalization)
  Sender: FDA-Public Use
  Company Number: US-VERTEX PHARMACEUTICALS INC.-2013-005135

PATIENT
  Sex: Female

DRUGS (3)
  1. VX-950 (TELAPREVIR) [Suspect]
     Indication: HEPATITIS C
     Dosage: 750 MG, BID
     Route: 048
     Dates: start: 20130124
  2. RIBAPAK [Suspect]
     Indication: HEPATITIS C
     Dosage: 600MG AM, 400MG PM, QD
     Route: 048
     Dates: start: 20130124
  3. PEGASYS [Suspect]
     Indication: HEPATITIS C
     Dosage: 180 ?G, QW
     Route: 058
     Dates: start: 20130124

REACTIONS (6)
  - Hepatotoxicity [Unknown]
  - Ammonia increased [Unknown]
  - Dehydration [Unknown]
  - Cough [Unknown]
  - Fatigue [Unknown]
  - Alopecia [Unknown]
